FAERS Safety Report 24752523 (Version 1)
Quarter: 2024Q4

REPORT INFORMATION
  Report Type: Other
  Country: US (occurrence: US)
  Receive Date: 20241219
  Receipt Date: 20241219
  Transmission Date: 20250114
  Serious: Yes (Other)
  Sender: AILEX PHARMACEUTICALS LLC
  Company Number: US-AP-2024-08481

PATIENT
  Age: 24 Year
  Sex: Female

DRUGS (3)
  1. CROMOLYN [Suspect]
     Active Substance: CROMOLYN
     Indication: Anaphylactic reaction
     Route: 065
  2. KETOTIFEN [Concomitant]
     Active Substance: KETOTIFEN
     Indication: Anaphylactic reaction
  3. OMALIZUMAB [Concomitant]
     Active Substance: OMALIZUMAB
     Indication: Anaphylactic reaction

REACTIONS (1)
  - Drug ineffective [Unknown]
